FAERS Safety Report 7990807-6 (Version None)
Quarter: 2011Q4

REPORT INFORMATION
  Report Type: 
  Country: None (occurrence: None)
  Receive Date: 20111219
  Receipt Date: 20111205
  Transmission Date: 20120403
  Serious: Yes (Hospitalization, Other)
  Sender: FDA-Public Use
  Company Number: US-BAYER-2011-014484

PATIENT
  Age: 32 Year
  Sex: Female
  Weight: 78.005 kg

DRUGS (4)
  1. YASMIN [Suspect]
     Indication: PRODUCT USED FOR UNKNOWN INDICATION
     Dosage: UNK
     Dates: start: 20030101, end: 20100101
  2. DIETARY SUPPLEMENT [Concomitant]
     Dosage: UNK
     Dates: start: 20091009, end: 20100514
  3. YAZ [Suspect]
     Indication: PRODUCT USED FOR UNKNOWN INDICATION
     Dosage: UNK
     Dates: start: 20030101, end: 20100101
  4. KENALOG [Concomitant]
     Dosage: UNK
     Route: 030
     Dates: start: 20100616, end: 20100616

REACTIONS (5)
  - ANXIETY [None]
  - CHOLECYSTITIS CHRONIC [None]
  - PAIN [None]
  - GALLBLADDER DISORDER [None]
  - FEAR [None]
